FAERS Safety Report 12749233 (Version 1)
Quarter: 2016Q3

REPORT INFORMATION
  Report Type: Spontaneous
  Country: US (occurrence: US)
  Receive Date: 20160915
  Receipt Date: 20160915
  Transmission Date: 20161109
  Serious: No
  Sender: FDA-Public Use
  Company Number: US-ASTELLAS-2016US013309

PATIENT
  Sex: Male

DRUGS (2)
  1. XTANDI [Suspect]
     Active Substance: ENZALUTAMIDE
     Indication: PROSTATE CANCER
     Dosage: UNK, UNKNOWN FREQ.
     Route: 065
     Dates: end: 20160401
  2. CAPECITABINE. [Concomitant]
     Active Substance: CAPECITABINE
     Indication: PROSTATE CANCER
     Dosage: 4 DF, TWICE DAILY ON DAYS 1-14, THEN 7 DAYS OFF
     Route: 048
     Dates: start: 20160225

REACTIONS (2)
  - Diarrhoea [Unknown]
  - Fatigue [Unknown]
